FAERS Safety Report 8500090 (Version 7)
Quarter: 2013Q1

REPORT INFORMATION
  Report Type: Spontaneous
  Country: US (occurrence: US)
  Receive Date: 20120409
  Receipt Date: 20130117
  Transmission Date: 20140127
  Serious: Yes (Hospitalization, Other)
  Sender: FDA-Public Use
  Company Number: US-009507513-1204USA00884

PATIENT
  Sex: 0

DRUGS (9)
  1. FOSAMAX [Suspect]
     Indication: OSTEOPOROSIS
     Dosage: 70 MG, QW
     Route: 048
     Dates: start: 2003
  2. FOSAMAX [Suspect]
     Indication: OSTEOPENIA
  3. ALENDRONATE SODIUM [Suspect]
     Dosage: 70 MG, UNK
  4. LANTUS [Concomitant]
     Indication: DIABETES MELLITUS
  5. INSULIN LISPRO [Concomitant]
     Indication: DIABETES MELLITUS
  6. LYRICA [Concomitant]
     Indication: FIBROMYALGIA
  7. METFORMIN [Concomitant]
     Indication: DIABETES MELLITUS
  8. NOVOLOG [Concomitant]
     Indication: DIABETES MELLITUS
  9. NOVOLIN NPH [Concomitant]
     Indication: DIABETES MELLITUS

REACTIONS (81)
  - Pneumothorax [Unknown]
  - Mastectomy [Unknown]
  - Systemic inflammatory response syndrome [Unknown]
  - Vaginoplasty [Unknown]
  - Hearing impaired [Unknown]
  - Cardiac failure congestive [Unknown]
  - Cholelithiasis [Unknown]
  - Vertebroplasty [Unknown]
  - Systemic lupus erythematosus [Unknown]
  - Sepsis [Unknown]
  - Pneumonia [Unknown]
  - Deafness [Unknown]
  - Urinary incontinence [Unknown]
  - Femur fracture [Recovering/Resolving]
  - Impaired healing [Unknown]
  - Low turnover osteopathy [Unknown]
  - Upper respiratory tract infection [Unknown]
  - Diabetes mellitus inadequate control [Not Recovered/Not Resolved]
  - Colon adenoma [Unknown]
  - Anaemia [Unknown]
  - Hypercholesterolaemia [Unknown]
  - Fibromyalgia [Unknown]
  - Diabetic neuropathy [Unknown]
  - Joint effusion [Unknown]
  - Gastroenteritis [Unknown]
  - Pulmonary mass [Unknown]
  - Osteoarthritis [Unknown]
  - Nephropathy [Unknown]
  - Retinopathy [Unknown]
  - Sleep apnoea syndrome [Unknown]
  - Weight increased [Unknown]
  - Swelling [Unknown]
  - Bronchitis [Unknown]
  - Binge eating [Unknown]
  - Limb operation [Unknown]
  - Intestinal polyp [Unknown]
  - Anaemia of chronic disease [Unknown]
  - Fall [Unknown]
  - Sciatica [Unknown]
  - Cardiomegaly [Unknown]
  - Pharyngitis [Unknown]
  - Nasal congestion [Unknown]
  - Magnesium metabolism disorder [Unknown]
  - Hypokalaemia [Unknown]
  - Fungal infection [Unknown]
  - Dehydration [Unknown]
  - Pulmonary congestion [Unknown]
  - Asthma [Unknown]
  - Spinal osteoarthritis [Unknown]
  - Cushing^s syndrome [Unknown]
  - Claustrophobia [Unknown]
  - Compression fracture [Unknown]
  - Hyperlipidaemia [Unknown]
  - Iron deficiency anaemia [Unknown]
  - Cataract [Unknown]
  - Conjunctivitis allergic [Unknown]
  - Rotator cuff syndrome [Unknown]
  - Osteoarthritis [Unknown]
  - Cellulitis [Unknown]
  - Joint abscess [Unknown]
  - Peptic ulcer [Unknown]
  - Helicobacter infection [Unknown]
  - Drug ineffective [Unknown]
  - Headache [Unknown]
  - Myalgia [Unknown]
  - Arthralgia [Unknown]
  - Back pain [Unknown]
  - Intraductal proliferative breast lesion [None]
  - Gallbladder disorder [None]
  - Neuralgia [None]
  - Activities of daily living impaired [None]
  - Depression [None]
  - Anxiety [None]
  - Pain [None]
  - Fear [None]
  - Nightmare [None]
  - Pathological fracture [None]
  - Fracture displacement [None]
  - Spinal compression fracture [None]
  - Radiculopathy [None]
  - Spinal column stenosis [None]
